FAERS Safety Report 24787707 (Version 1)
Quarter: 2024Q4

REPORT INFORMATION
  Report Type: Spontaneous
  Country: US (occurrence: US)
  Receive Date: 20241230
  Receipt Date: 20241230
  Transmission Date: 20250115
  Serious: Yes (Other)
  Sender: SANDOZ
  Company Number: US-INCYTE CORPORATION-2023IN010531

PATIENT
  Sex: Male

DRUGS (51)
  1. JAKAFI [Suspect]
     Active Substance: RUXOLITINIB
     Dosage: 5 MG, BID
     Route: 065
     Dates: start: 20240123
  2. JAKAFI [Suspect]
     Active Substance: RUXOLITINIB
     Dosage: 10 MILLIGRAM, QPM
     Route: 048
  3. JAKAFI [Suspect]
     Active Substance: RUXOLITINIB
     Dosage: 10 MILLIGRAM, QPM
     Route: 048
  4. JAKAFI [Suspect]
     Active Substance: RUXOLITINIB
     Dosage: 15 MG (TAKE 15MG TABLET EVERY MORNING AND 25MG TABLETS EVERY EVENING)
     Route: 048
  5. JAKAFI [Suspect]
     Active Substance: RUXOLITINIB
     Dosage: TAKE 15MG TABLET EVERY MORNING AND 25MG TABLETS EVERY EVENING
     Route: 048
  6. JAKAFI [Suspect]
     Active Substance: RUXOLITINIB
     Dosage: TAKE 15MG TABLET EVERY MORNING AND 25MG TABLETS EVERY EVENING
     Route: 048
  7. JAKAFI [Suspect]
     Active Substance: RUXOLITINIB
     Dosage: 15 MG, QD (5MG IN THE MORNING AND 10MG IN THE EVENING)
     Route: 065
     Dates: start: 20231204
  8. JAKAFI [Suspect]
     Active Substance: RUXOLITINIB
     Dosage: 15MG PER DAY, 5MG IN THE MORNING AND 10MG IN THE NIGHT
     Route: 065
     Dates: start: 20231204
  9. JAKAFI [Suspect]
     Active Substance: RUXOLITINIB
     Dosage: 10 MG, BID
     Route: 065
  10. JAKAFI [Suspect]
     Active Substance: RUXOLITINIB
     Indication: Polycythaemia vera
     Dosage: 10 MILLIGRAM, BID
     Route: 065
     Dates: start: 202001
  11. JAKAFI [Suspect]
     Active Substance: RUXOLITINIB
     Dosage: 5MG IN THE MORNING AND 10MG IN THE EVENING
     Route: 065
  12. JAKAFI [Suspect]
     Active Substance: RUXOLITINIB
     Dosage: 5MG IN THE MORNING AND 10MG IN THE EVENING
     Route: 065
  13. LISINOPRIL [Suspect]
     Active Substance: LISINOPRIL
     Indication: Product used for unknown indication
     Dosage: 40 MG
     Route: 065
  14. ALLOPURINOL [Concomitant]
     Active Substance: ALLOPURINOL
     Indication: Product used for unknown indication
     Dosage: 300 MILLIGRAM
     Route: 065
  15. ALLOPURINOL [Concomitant]
     Active Substance: ALLOPURINOL
     Dosage: 500 MILLIGRAM
     Route: 065
  16. ALPHA LIPOIC ACID [Concomitant]
     Active Substance: .ALPHA.-LIPOIC ACID
     Indication: Product used for unknown indication
     Dosage: 5 MG
     Route: 065
  17. ASPIRIN [Concomitant]
     Active Substance: ASPIRIN
     Indication: Product used for unknown indication
     Dosage: 81 MILLIGRAM
     Route: 065
  18. BIOTIN [Concomitant]
     Active Substance: BIOTIN
     Indication: Product used for unknown indication
     Dosage: 1000 MILLIGRAM
     Route: 065
  19. BIOTIN [Concomitant]
     Active Substance: BIOTIN
     Dosage: 5000 MILLIGRAM
     Route: 065
  20. Bitter melon [Concomitant]
     Indication: Product used for unknown indication
     Dosage: UNK
     Route: 065
  21. CALCIUM;MAGNESIUM [Concomitant]
     Indication: Product used for unknown indication
     Dosage: UNK
     Route: 065
  22. CALCIUM;MAGNESIUM [Concomitant]
     Dosage: UNK
     Route: 065
  23. FISH OIL [Concomitant]
     Active Substance: FISH OIL
     Indication: Product used for unknown indication
     Dosage: 1200 MILLIGRAM
     Route: 065
  24. FISH OIL [Concomitant]
     Active Substance: FISH OIL
     Dosage: 1200 MILLIGRAM
     Route: 065
  25. FOLIC ACID [Concomitant]
     Active Substance: FOLIC ACID
     Dosage: 800 UG
     Route: 065
  26. FOLIC ACID [Concomitant]
     Active Substance: FOLIC ACID
     Indication: Product used for unknown indication
     Dosage: UNK
     Route: 065
  27. GLUCOSAMINE [Concomitant]
     Active Substance: GLUCOSAMINE
     Indication: Product used for unknown indication
     Dosage: UNK
     Route: 065
  28. GLUCOSAMINE [Concomitant]
     Active Substance: GLUCOSAMINE
     Dosage: UNK
     Route: 065
  29. Heliocare advanced [Concomitant]
     Dosage: 100 MICROGRAM
     Route: 065
  30. Heliocare advanced [Concomitant]
     Dosage: 1000 MICROGRAM
     Route: 065
  31. Heliocare advanced [Concomitant]
     Dosage: 1500 MICROGRAM
     Route: 065
  32. Heliocare advanced [Concomitant]
     Dosage: 25 MICROGRAM
     Route: 065
  33. Heliocare advanced [Concomitant]
     Dosage: 250 MICROGRAM
     Route: 065
  34. Heliocare advanced [Concomitant]
     Dosage: 2500 MICROGRAM
     Route: 065
  35. Heliocare advanced [Concomitant]
     Indication: Product used for unknown indication
     Dosage: 50 MICROGRAM
     Route: 065
  36. Heliocare advanced [Concomitant]
     Dosage: 500 MICROGRAM
     Route: 065
  37. LEVOTHYROXINE [Concomitant]
     Active Substance: LEVOTHYROXINE
     Indication: Product used for unknown indication
     Dosage: UNK
     Route: 065
  38. MAGNESIUM [Concomitant]
     Active Substance: MAGNESIUM
     Indication: Product used for unknown indication
     Dosage: 300 MILLIGRAM
     Route: 065
  39. MAGNESIUM [Concomitant]
     Active Substance: MAGNESIUM
     Dosage: 300 MILLIGRAM
     Route: 065
  40. METHYLSULFONAL [Concomitant]
     Indication: Product used for unknown indication
     Dosage: 300 MICROGRAM
     Route: 065
  41. DIMETHYL SULFONE [Concomitant]
     Active Substance: DIMETHYL SULFONE
     Indication: Product used for unknown indication
     Dosage: UNK
     Route: 065
  42. SYNTHROID [Concomitant]
     Active Substance: LEVOTHYROXINE SODIUM
     Indication: Product used for unknown indication
     Dosage: UNK (POWDER)
     Route: 065
  43. TURKEY TAIL MUSHROOM [Concomitant]
     Indication: Product used for unknown indication
     Dosage: 100 MILLIGRAM
     Route: 065
  44. TURKEY TAIL MUSHROOM [Concomitant]
     Dosage: 200 MILLIGRAM
     Route: 065
  45. TURKEY TAIL MUSHROOM [Concomitant]
     Dosage: 50 MILLIGRAM
     Route: 065
  46. TURKEY TAIL MUSHROOM [Concomitant]
     Dosage: UNK
     Route: 065
  47. TURKEY TAIL MUSHROOM [Concomitant]
     Dosage: UNK
     Route: 065
  48. HERBALS\TURMERIC [Concomitant]
     Active Substance: HERBALS\TURMERIC
     Indication: Product used for unknown indication
     Dosage: UNK
     Route: 065
  49. VITAMIN D NOS [Concomitant]
     Active Substance: CHOLECALCIFEROL\ERGOCALCIFEROL
     Indication: Product used for unknown indication
     Dosage: 25 MCG (1000)
     Route: 065
  50. VITAMIN B12 [Concomitant]
     Active Substance: CYANOCOBALAMIN
     Indication: Product used for unknown indication
     Dosage: 500-400M
     Route: 065
  51. ZINC [Concomitant]
     Active Substance: ZINC
     Indication: Product used for unknown indication
     Dosage: 100 MILLIGRAM
     Route: 065

REACTIONS (18)
  - Squamous cell carcinoma of skin [Recovered/Resolved]
  - Myelofibrosis [Unknown]
  - Splenomegaly [Recovering/Resolving]
  - Gout [Unknown]
  - Weight decreased [Recovering/Resolving]
  - Brain fog [Unknown]
  - Swollen tongue [Unknown]
  - Muscle spasms [Unknown]
  - Disease progression [Unknown]
  - Discomfort [Unknown]
  - Somnolence [Unknown]
  - Insomnia [Unknown]
  - Decreased appetite [Unknown]
  - Platelet count decreased [Unknown]
  - Diarrhoea [Unknown]
  - Fatigue [Unknown]
  - Abdominal discomfort [Unknown]
  - Drug ineffective [Unknown]
